FAERS Safety Report 12153771 (Version 1)
Quarter: 2016Q1

REPORT INFORMATION
  Report Type: Spontaneous
  Country: US (occurrence: US)
  Receive Date: 20160307
  Receipt Date: 20160307
  Transmission Date: 20160526
  Serious: No
  Sender: FDA-Public Use
  Company Number: US-BRISTOL-MYERS SQUIBB COMPANY-BMS-2016-016293

PATIENT
  Sex: Female

DRUGS (1)
  1. SPRYCEL [Suspect]
     Active Substance: DASATINIB
     Indication: COLON CANCER
     Dosage: 100 MG, QD
     Route: 065
     Dates: start: 20160210

REACTIONS (4)
  - Malaise [Unknown]
  - Off label use [Unknown]
  - Rash [Unknown]
  - Back pain [Unknown]
